FAERS Safety Report 9096576 (Version 1)
Quarter: 2013Q1

REPORT INFORMATION
  Report Type: Spontaneous
  Country: BR (occurrence: BR)
  Receive Date: 20130211
  Receipt Date: 20130211
  Transmission Date: 20140127
  Serious: Yes (Death, Other)
  Sender: FDA-Public Use
  Company Number: BR-ABBOTT-13P-020-1047281-00

PATIENT
  Sex: Female

DRUGS (2)
  1. DEPAKINE [Suspect]
     Indication: CONVULSION
  2. UNSPECIFIED DRUG [Concomitant]
     Indication: ANTIDEPRESSANT THERAPY

REACTIONS (4)
  - Cardiac arrest [Fatal]
  - Platelet count decreased [Fatal]
  - Infection [Fatal]
  - Abdominal pain upper [Fatal]
